FAERS Safety Report 6879118-X (Version None)
Quarter: 2010Q3

REPORT INFORMATION
  Report Type: 
  Country: None (occurrence: None)
  Receive Date: 20100728
  Receipt Date: 20100708
  Transmission Date: 20110219
  Serious: Yes (Hospitalization)
  Sender: FDA-Public Use
  Company Number: US-BAYER-201027565NA

PATIENT
  Age: 20 Year
  Sex: Female

DRUGS (1)
  1. MIRENA [Suspect]
     Indication: CONTRACEPTION
     Dosage: FREQUENCY: CONTINUOUS
     Route: 015
     Dates: start: 20100521, end: 20100624

REACTIONS (5)
  - ABDOMINAL DISCOMFORT [None]
  - DEVICE EXPULSION [None]
  - UTERINE INFECTION [None]
  - UTERINE PAIN [None]
  - UTERINE TENDERNESS [None]
